FAERS Safety Report 23433260 (Version 1)
Quarter: 2024Q1

REPORT INFORMATION
  Report Type: Spontaneous
  Country: US (occurrence: US)
  Receive Date: 20240123
  Receipt Date: 20240123
  Transmission Date: 20240409
  Serious: No
  Sender: FDA-Public Use
  Company Number: US-BRISTOL-MYERS SQUIBB COMPANY-2024-011062

PATIENT
  Age: 89 Year
  Sex: Female

DRUGS (1)
  1. REVLIMID [Suspect]
     Active Substance: LENALIDOMIDE
     Indication: Plasma cell myeloma
     Dosage: 1 TIME A DAY FOR 14 DAYS ON AND 7 DAYS OFF.
     Route: 048
     Dates: start: 202401, end: 20240113

REACTIONS (5)
  - Diarrhoea [Unknown]
  - Rash [Unknown]
  - Swelling face [Unknown]
  - Off label use [Unknown]
  - Erythema [Unknown]
